FAERS Safety Report 15712600 (Version 2)
Quarter: 2018Q4

REPORT INFORMATION
  Report Type: Spontaneous
  Country: US (occurrence: US)
  Receive Date: 20181212
  Receipt Date: 20181219
  Transmission Date: 20190205
  Serious: Yes (Hospitalization, Other)
  Sender: FDA-Public Use
  Company Number: US-ABBVIE-18K-163-2584417-00

PATIENT
  Age: 64 Year
  Sex: Male
  Weight: 83.54 kg

DRUGS (1)
  1. HUMIRA [Suspect]
     Active Substance: ADALIMUMAB
     Indication: CROHN^S DISEASE
     Route: 058
     Dates: start: 200802

REACTIONS (18)
  - Neuroendocrine carcinoma metastatic [Unknown]
  - Gastric dilatation [Recovered/Resolved]
  - Gastrointestinal inflammation [Recovered/Resolved]
  - Vomiting [Recovered/Resolved]
  - Abdominal distension [Recovered/Resolved]
  - Anaemia of chronic disease [Recovered/Resolved]
  - Small intestinal obstruction [Recovered/Resolved]
  - Procedural pain [Not Recovered/Not Resolved]
  - Small intestinal stenosis [Recovered/Resolved]
  - Intestinal dilatation [Recovered/Resolved]
  - White blood cell count increased [Recovered/Resolved]
  - Gastrointestinal wall thickening [Recovered/Resolved]
  - Leukocytosis [Recovered/Resolved]
  - Crohn^s disease [Recovered/Resolved]
  - Nausea [Recovered/Resolved]
  - Intestinal dilatation [Recovered/Resolved]
  - Neuroendocrine tumour [Not Recovered/Not Resolved]
  - Abdominal pain [Recovered/Resolved]

NARRATIVE: CASE EVENT DATE: 2018
